FAERS Safety Report 13072604 (Version 3)
Quarter: 2018Q3

REPORT INFORMATION
  Report Type: Spontaneous
  Country: US (occurrence: US)
  Receive Date: 20161229
  Receipt Date: 20180727
  Transmission Date: 20181010
  Serious: Yes (Other)
  Sender: FDA-Public Use
  Company Number: US-SA-2016SA175194

PATIENT
  Age: 62 Year
  Sex: Female
  Weight: 69.4 kg

DRUGS (5)
  1. CYCLOPHOSPHAMIDE. [Concomitant]
     Active Substance: CYCLOPHOSPHAMIDE
     Dosage: 150 MG, Q3W
     Dates: start: 20050107, end: 20050107
  2. TAXOTERE [Suspect]
     Active Substance: DOCETAXEL
     Dosage: 150 MG, Q3W
     Route: 042
     Dates: start: 20050513, end: 20050513
  3. ADRIAMYCIN [DOXORUBICIN] [Concomitant]
     Dosage: UNK UNK,QCY
     Route: 065
  4. CYCLOPHOSPHAMIDE. [Concomitant]
     Active Substance: CYCLOPHOSPHAMIDE
     Dosage: 150 UNK
     Route: 042
     Dates: start: 20050513, end: 20050513
  5. TAXOTERE [Suspect]
     Active Substance: DOCETAXEL
     Indication: BREAST CANCER FEMALE
     Dosage: 150 MG, Q3W
     Route: 042
     Dates: start: 20050107, end: 20050107

REACTIONS (6)
  - Pain [Unknown]
  - Psychological trauma [Unknown]
  - Emotional distress [Unknown]
  - Anxiety [Unknown]
  - Alopecia [Recovering/Resolving]
  - Impaired quality of life [Unknown]

NARRATIVE: CASE EVENT DATE: 200502
